FAERS Safety Report 4571161-9 (Version None)
Quarter: 2005Q1

REPORT INFORMATION
  Report Type: 
  Country: None (occurrence: None)
  Receive Date: 20050202
  Receipt Date: 20050119
  Transmission Date: 20050727
  Serious: Yes (Hospitalization, Other)
  Sender: FDA-Public Use
  Company Number: JP_050105683

PATIENT
  Age: 72 Year
  Sex: Male

DRUGS (5)
  1. ONCOVIN [Suspect]
     Indication: DIFFUSE LARGE B-CELL LYMPHOMA
     Dates: start: 20031206
  2. CYCLOPHOSPHAMIDE [Concomitant]
  3. DOXORUBICIN HCL [Concomitant]
  4. PREDNISOLONE [Concomitant]
  5. RITUXIMAB [Concomitant]

REACTIONS (8)
  - BLOOD CREATININE INCREASED [None]
  - CONSTIPATION [None]
  - FOETAL CARDIAC DISORDER [None]
  - ILEUS PARALYTIC [None]
  - ORAL INTAKE REDUCED [None]
  - TUMOUR LYSIS SYNDROME [None]
  - URINE OUTPUT DECREASED [None]
  - WEIGHT INCREASED [None]
